FAERS Safety Report 4958529-3 (Version None)
Quarter: 2006Q1

REPORT INFORMATION
  Report Type: 
  Country: None (occurrence: None)
  Receive Date: 20060127
  Receipt Date: 20050914
  Transmission Date: 20060701
  Serious: Yes (Death, Other)
  Sender: FDA-Public Use
  Company Number: 2005-US-00114

PATIENT
  Age: 29 Year
  Sex: Male

DRUGS (1)
  1. CLOZAPINE [Suspect]
     Indication: ABNORMAL BEHAVIOUR
     Dosage: 300 MG, QD, ORAL
     Route: 048
     Dates: start: 20001001, end: 20050701

REACTIONS (1)
  - LARGE INTESTINAL OBSTRUCTION [None]
